FAERS Safety Report 8616820-3 (Version None)
Quarter: 2012Q3

REPORT INFORMATION
  Report Type: 
  Country: None (occurrence: None)
  Receive Date: 20120823
  Receipt Date: 20120808
  Transmission Date: 20120928
  Serious: No
  Sender: FDA-Public Use
  Company Number: US-009507513-1208USA003767

PATIENT

DRUGS (3)
  1. RIBASPHERE [Suspect]
  2. PEG-INTRON [Suspect]
     Indication: HEPATITIS C
     Dosage: 150 MICROGRAM, QW
     Route: 058
     Dates: start: 20120416, end: 20120807
  3. INCIVEK [Concomitant]

REACTIONS (1)
  - FULL BLOOD COUNT DECREASED [None]
